FAERS Safety Report 9543311 (Version 2)
Quarter: 2013Q3

REPORT INFORMATION
  Report Type: Spontaneous
  Country: DK (occurrence: DK)
  Receive Date: 20130923
  Receipt Date: 20130923
  Transmission Date: 20140515
  Serious: Yes (Hospitalization)
  Sender: FDA-Public Use
  Company Number: DK-009507513-2012SP025251

PATIENT
  Sex: Female
  Weight: 65 kg

DRUGS (4)
  1. MERCILON [Suspect]
     Dosage: UNK
     Route: 048
     Dates: start: 1993, end: 20020222
  2. MINULET [Suspect]
     Indication: CONTRACEPTION
     Dosage: UNK
     Route: 065
  3. ASACOL [Concomitant]
     Dosage: UNK
  4. PANODIL [Concomitant]
     Dosage: UNK

REACTIONS (8)
  - Gastrointestinal disorder [Recovered/Resolved]
  - Cerebral thrombosis [Recovered/Resolved with Sequelae]
  - Photophobia [Recovered/Resolved]
  - Memory impairment [Not Recovered/Not Resolved]
  - Visual acuity reduced [Not Recovered/Not Resolved]
  - Motor dysfunction [Not Recovered/Not Resolved]
  - Headache [Recovered/Resolved]
  - Weight decreased [Recovered/Resolved]
